FAERS Safety Report 8672865 (Version 3)
Quarter: 2012Q4

REPORT INFORMATION
  Report Type: 
  Country: JP (occurrence: JP)
  Receive Date: 20120719
  Receipt Date: 20120829
  Transmission Date: 20130627
  Serious: Yes (Life-Threatening, Hospitalization)
  Sender: FDA-Public Use
  Company Number: JP-ASTRAZENECA-2012SE49699

PATIENT
  Age: 70 Year
  Sex: Female
  Weight: 60 kg

DRUGS (3)
  1. XYLOCAINE POLYAMP [Suspect]
     Indication: OSTEOARTHRITIS
     Route: 053
     Dates: start: 20120615, end: 20120615
  2. XYLOCAINE [Suspect]
     Indication: TRIGGER FINGER
     Route: 053
     Dates: start: 20120615, end: 20120615
  3. KENACORT [Suspect]
     Indication: TRIGGER FINGER
     Route: 053
     Dates: start: 20120615, end: 20120615

REACTIONS (2)
  - Anaphylactic shock [Recovering/Resolving]
  - Urticaria [Recovered/Resolved]
